FAERS Safety Report 25089107 (Version 4)
Quarter: 2025Q3

REPORT INFORMATION
  Report Type: Report from Study
  Country: US (occurrence: US)
  Receive Date: 20250318
  Receipt Date: 20250716
  Transmission Date: 20251021
  Serious: Yes (Other)
  Sender: AVADEL CNS PHARMACEUTICALS, LLC
  Company Number: US-AVADEL CNS PHARMACEUTICALS, LLC-2025AVA00449

PATIENT
  Sex: Female

DRUGS (12)
  1. LUMRYZ [Suspect]
     Active Substance: SODIUM OXYBATE
     Indication: Narcolepsy
     Dosage: 4.5 G, ONCE NIGHTLY AT BEDTIME
     Route: 048
     Dates: start: 202502, end: 20250213
  2. LUMRYZ [Suspect]
     Active Substance: SODIUM OXYBATE
     Indication: Cataplexy
  3. LUMRYZ [Suspect]
     Active Substance: SODIUM OXYBATE
     Indication: Narcolepsy
     Dosage: 6 G, ONCE NIGHTLY AT BEDTIME
     Route: 048
     Dates: start: 20250214, end: 20250227
  4. LUMRYZ [Suspect]
     Active Substance: SODIUM OXYBATE
     Indication: Cataplexy
  5. LUMRYZ [Suspect]
     Active Substance: SODIUM OXYBATE
     Indication: Narcolepsy
     Dosage: 7.5 G, ONCE NIGHTLY AT BEDTIME
     Route: 048
     Dates: start: 20250228, end: 2025
  6. LUMRYZ [Suspect]
     Active Substance: SODIUM OXYBATE
     Indication: Cataplexy
     Dosage: 7.5 G, ONCE NIGHTLY AT BEDTIME
     Route: 048
     Dates: start: 2025
  7. WAKIX [Concomitant]
     Active Substance: PITOLISANT HYDROCHLORIDE
  8. CEQUA [Concomitant]
     Active Substance: CYCLOSPORINE
  9. VITAMINS NOS [Concomitant]
     Active Substance: VITAMINS
  10. CALCIUM [Concomitant]
     Active Substance: CALCIUM
  11. VITAMIN D3 [Concomitant]
     Active Substance: CHOLECALCIFEROL
  12. XIIDRA [Concomitant]
     Active Substance: LIFITEGRAST

REACTIONS (15)
  - Loss of consciousness [Recovered/Resolved]
  - Fall [Recovered/Resolved]
  - Influenza [Not Recovered/Not Resolved]
  - Poor quality sleep [Not Recovered/Not Resolved]
  - Balance disorder [Unknown]
  - Ligament sprain [Not Recovered/Not Resolved]
  - Nocturia [Not Recovered/Not Resolved]
  - Dry mouth [Not Recovered/Not Resolved]
  - Dizziness [Not Recovered/Not Resolved]
  - Headache [Unknown]
  - Muscle spasms [Not Recovered/Not Resolved]
  - Decreased appetite [Recovering/Resolving]
  - Pain [Unknown]
  - Head injury [Unknown]
  - Drug ineffective [Unknown]

NARRATIVE: CASE EVENT DATE: 20250101
